FAERS Safety Report 6489860-0 (Version None)
Quarter: 2009Q4

REPORT INFORMATION
  Report Type: 
  Country: None (occurrence: None)
  Receive Date: 20091211
  Receipt Date: 20091204
  Transmission Date: 20100525
  Serious: Yes (Hospitalization, Other)
  Sender: FDA-Public Use
  Company Number: US-ELI_LILLY_AND_COMPANY-US200912001834

PATIENT
  Sex: Female

DRUGS (9)
  1. HUMULIN R [Suspect]
     Indication: DIABETES MELLITUS
     Dosage: UNK, AS NEEDED
  2. HUMULIN R [Suspect]
     Dosage: 250 U, DAILY (1/D)
  3. HUMULIN N [Suspect]
     Indication: DIABETES MELLITUS
     Dosage: 200 U, DAILY (1/D)
     Dates: end: 19990101
  4. METOPROLOL [Concomitant]
     Dosage: 12.5 MG, DAILY (1/D)
  5. DIOVAN [Concomitant]
     Dosage: 160 MG, UNK
  6. FUROSEMIDE [Concomitant]
     Dosage: 20 MG, 3/D
  7. ROBAXIN [Concomitant]
     Indication: PAIN
  8. POTASSIUM [Concomitant]
     Dosage: 10 MEQ, 2/D
  9. DIGOXIN [Concomitant]
     Dosage: 0.125 MG, DAILY (1/D)

REACTIONS (11)
  - ARTHRALGIA [None]
  - ASTHENIA [None]
  - BLOOD GLUCOSE DECREASED [None]
  - BLOOD GLUCOSE INCREASED [None]
  - BLOOD PRESSURE DECREASED [None]
  - DEAFNESS BILATERAL [None]
  - GLAUCOMA [None]
  - METABOLIC FUNCTION TEST ABNORMAL [None]
  - NEUROPATHY PERIPHERAL [None]
  - OEDEMA [None]
  - RETINITIS [None]
